APPROVED DRUG PRODUCT: MICONAZOLE 3 COMBINATION PACK
Active Ingredient: MICONAZOLE NITRATE
Strength: 2%,4%
Dosage Form/Route: CREAM;TOPICAL, VAGINAL
Application: A076357 | Product #001
Applicant: L PERRIGO CO
Approved: Mar 30, 2004 | RLD: No | RS: No | Type: OTC